FAERS Safety Report 7665920-3 (Version None)
Quarter: 2011Q3

REPORT INFORMATION
  Report Type: 
  Country: None (occurrence: None)
  Receive Date: 20110806
  Receipt Date: 20110505
  Transmission Date: 20111222
  Serious: No
  Sender: FDA-Public Use
  Company Number: US-ABBOTT-11P-163-0723580-00

PATIENT
  Sex: Female
  Weight: 99.88 kg

DRUGS (13)
  1. VYTORIN [Concomitant]
     Indication: PRODUCT USED FOR UNKNOWN INDICATION
  2. NIASPAN [Suspect]
     Indication: BLOOD CHOLESTEROL INCREASED
  3. PENTAPRAZOLE [Concomitant]
     Indication: PRODUCT USED FOR UNKNOWN INDICATION
  4. RECLIP [Concomitant]
     Indication: PRODUCT USED FOR UNKNOWN INDICATION
  5. NEURONTIN [Concomitant]
     Indication: PRODUCT USED FOR UNKNOWN INDICATION
  6. NIASPAN [Suspect]
     Indication: BLOOD TRIGLYCERIDES INCREASED
     Dosage: AT BEDTIME
     Dates: start: 20110502
  7. NADOLOL [Concomitant]
     Indication: PRODUCT USED FOR UNKNOWN INDICATION
  8. LORAZEPAM [Concomitant]
     Indication: PRODUCT USED FOR UNKNOWN INDICATION
  9. CYMBALTA [Concomitant]
     Indication: PRODUCT USED FOR UNKNOWN INDICATION
  10. BENACAR [Concomitant]
     Indication: PRODUCT USED FOR UNKNOWN INDICATION
  11. TRAMADOL HCL [Concomitant]
     Indication: PRODUCT USED FOR UNKNOWN INDICATION
  12. DICYCLINE HYCLATE [Concomitant]
     Indication: PRODUCT USED FOR UNKNOWN INDICATION
  13. CALCIUM ACETATE [Concomitant]
     Indication: PRODUCT USED FOR UNKNOWN INDICATION

REACTIONS (2)
  - ERYTHEMA [None]
  - FEELING HOT [None]
